FAERS Safety Report 8359349-2 (Version None)
Quarter: 2012Q2

REPORT INFORMATION
  Report Type: 
  Country: None (occurrence: None)
  Receive Date: 20120515
  Receipt Date: 20120510
  Transmission Date: 20120825
  Serious: No
  Sender: FDA-Public Use
  Company Number: US-PFIZER INC-2012114454

PATIENT
  Sex: Male

DRUGS (1)
  1. IBUPROFEN (ADVIL) [Suspect]
     Dosage: 3 TABLETS, 2X/DAY
     Route: 048
     Dates: start: 20120501

REACTIONS (1)
  - BACK PAIN [None]
